FAERS Safety Report 18982215 (Version 1)
Quarter: 2021Q1

REPORT INFORMATION
  Report Type: Spontaneous
  Country: NL (occurrence: NL)
  Receive Date: 20210308
  Receipt Date: 20210308
  Transmission Date: 20210420
  Serious: Yes (Death)
  Sender: FDA-Public Use
  Company Number: NL-TEVA-2021-NL-1887083

PATIENT
  Age: 38 Year
  Sex: Male
  Weight: 70 kg

DRUGS (3)
  1. VENLAFAXINE HYDROCHLORIDE / BRAND NAME NOT SPECIFIED [Suspect]
     Active Substance: VENLAFAXINE HYDROCHLORIDE
     Indication: DEPRESSION
     Dosage: THERAPY END DATE ASKU
     Dates: start: 20210205
  2. OXAZEPAM TABLET 50MG / BRAND NAME NOT SPECIFIED [Concomitant]
     Dosage: 50 MG (MILLIGRAM),THERAPY START DATE ASKU, THERAPY END DATE ASKU
  3. OLANZAPINE SMELTTABLET  5MG / BRAND NAME NOT SPECIFIED [Concomitant]
     Dosage: 5 MG (MILLIGRAM),MELT TABLET,THERAPY START DATE ASKU, THERAPY END DATE ASKU

REACTIONS (1)
  - Completed suicide [Fatal]

NARRATIVE: CASE EVENT DATE: 20210216
